FAERS Safety Report 19175166 (Version 1)
Quarter: 2021Q2

REPORT INFORMATION
  Report Type: Spontaneous
  Country: US (occurrence: US)
  Receive Date: 20210423
  Receipt Date: 20210423
  Transmission Date: 20210717
  Serious: Yes (Other)
  Sender: FDA-Public Use
  Company Number: US-MALLINCKRODT PHARMACEUTICALS-T202101708

PATIENT
  Age: 1 Year
  Sex: Male
  Weight: 7 kg

DRUGS (2)
  1. H.P. ACTHAR [Suspect]
     Active Substance: CORTICOTROPIN
     Dosage: 0.33 UNITS TWICE A DAY
     Route: 065
     Dates: start: 2021
  2. H.P. ACTHAR [Suspect]
     Active Substance: CORTICOTROPIN
     Indication: INFANTILE SPASMS
     Dosage: 0.37 MILLILITER, BID FOR 14 DAYS
     Route: 030
     Dates: start: 20210226, end: 2021

REACTIONS (6)
  - Irritability [Not Recovered/Not Resolved]
  - Cyanosis [Not Recovered/Not Resolved]
  - Device connection issue [Unknown]
  - Product storage error [Unknown]
  - Product dose omission issue [Unknown]
  - Blood glucose increased [Unknown]

NARRATIVE: CASE EVENT DATE: 2021
